FAERS Safety Report 5226256-3 (Version None)
Quarter: 2007Q1

REPORT INFORMATION
  Report Type: 
  Country: None (occurrence: None)
  Receive Date: 20070201
  Receipt Date: 20070119
  Transmission Date: 20070707
  Serious: Yes (Life-Threatening)
  Sender: FDA-Public Use
  Company Number: 2006CG02011

PATIENT
  Age: 65 Year
  Sex: Female

DRUGS (2)
  1. NAROPEINE [Suspect]
     Indication: POSTOPERATIVE ANALGESIA
     Route: 053
     Dates: start: 20061205, end: 20061205
  2. PROPOFOL [Concomitant]
     Indication: GENERAL ANAESTHESIA
     Route: 042
     Dates: start: 20061205, end: 20061205

REACTIONS (4)
  - CARDIAC ARREST [None]
  - HYPOPROTEINAEMIA [None]
  - OVERDOSE [None]
  - VENTRICULAR FIBRILLATION [None]
